FAERS Safety Report 21006316 (Version 2)
Quarter: 2022Q3

REPORT INFORMATION
  Report Type: Spontaneous
  Country: JP (occurrence: JP)
  Receive Date: 20220624
  Receipt Date: 20220701
  Transmission Date: 20221026
  Serious: Yes (Hospitalization)
  Sender: FDA-Public Use
  Company Number: JP-MYLANLABS-2022M1047864

PATIENT
  Age: 72 Year
  Sex: Female

DRUGS (3)
  1. CEFCAPENE [Suspect]
     Active Substance: CEFCAPENE
     Indication: Product used for unknown indication
     Route: 065
  2. ACETAMINOPHEN [Suspect]
     Active Substance: ACETAMINOPHEN
     Indication: Product used for unknown indication
     Route: 065
  3. TRANEXAMIC ACID [Suspect]
     Active Substance: TRANEXAMIC ACID
     Indication: Product used for unknown indication
     Route: 065

REACTIONS (2)
  - Condition aggravated [Recovering/Resolving]
  - Mucous membrane pemphigoid [Recovering/Resolving]
